FAERS Safety Report 6030931-0 (Version None)
Quarter: 2009Q1

REPORT INFORMATION
  Report Type: 
  Country: None (occurrence: None)
  Receive Date: 20090106
  Receipt Date: 20081216
  Transmission Date: 20090719
  Serious: Yes (Hospitalization)
  Sender: FDA-Public Use
  Company Number: 2008AL007655

PATIENT
  Age: 73 Year
  Sex: Female
  Weight: 68.9467 kg

DRUGS (13)
  1. DIGOXIN [Suspect]
     Dosage: 0.125 MG, M, W, F, PO
     Route: 048
  2. PLAVIX [Concomitant]
  3. ASPIRIN [Concomitant]
  4. LOVASTATIN [Concomitant]
  5. AMIODARONE HCL [Concomitant]
  6. RENAGEL [Concomitant]
  7. FUROSEMIDE [Concomitant]
  8. ELAVIL [Concomitant]
  9. CARVEDILOL [Concomitant]
  10. POTASSIUM CHLORIDE [Concomitant]
  11. LOPRESSOR [Concomitant]
  12. PRAVACHOL [Concomitant]
  13. CAPOTEN [Concomitant]

REACTIONS (11)
  - CARDIAC FAILURE [None]
  - CHEST PAIN [None]
  - CHILLS [None]
  - COUGH [None]
  - DEHYDRATION [None]
  - HYPERGLYCAEMIA [None]
  - PRODUCTIVE COUGH [None]
  - PULMONARY OEDEMA [None]
  - RENAL FAILURE [None]
  - TACHYCARDIA [None]
  - WHEEZING [None]
